FAERS Safety Report 7268014-4 (Version None)
Quarter: 2010Q4

REPORT INFORMATION
  Report Type: 
  Country: None (occurrence: None)
  Receive Date: 20101206
  Receipt Date: 20101108
  Transmission Date: 20110411
  Serious: No
  Sender: FDA-Public Use
  Company Number: 2010SP059267

PATIENT
  Sex: Female

DRUGS (2)
  1. SAPHRIS [Suspect]
     Indication: BIPOLAR DISORDER
     Dosage: 10 MG; HS; SL
     Route: 060
     Dates: start: 20101027
  2. CYMBALTA [Concomitant]

REACTIONS (2)
  - DYSGEUSIA [None]
  - INAPPROPRIATE SCHEDULE OF DRUG ADMINISTRATION [None]
